FAERS Safety Report 11464474 (Version 3)
Quarter: 2015Q3

REPORT INFORMATION
  Report Type: Spontaneous
  Country: US (occurrence: US)
  Receive Date: 20150831
  Receipt Date: 20150903
  Transmission Date: 20151125
  Serious: No
  Sender: FDA-Public Use
  Company Number: US-ELI_LILLY_AND_COMPANY-US201105000158

PATIENT
  Sex: Female

DRUGS (3)
  1. HEROIN [Concomitant]
     Active Substance: DIACETYLMORPHINE
     Route: 042
  2. CYMBALTA [Suspect]
     Active Substance: DULOXETINE HYDROCHLORIDE
     Dosage: 60 MG, QD
     Dates: start: 20110426
  3. CYMBALTA [Suspect]
     Active Substance: DULOXETINE HYDROCHLORIDE
     Indication: MAJOR DEPRESSION
     Dosage: 90 MG, QD
     Dates: start: 201101, end: 201104

REACTIONS (1)
  - Exposure during pregnancy [Recovered/Resolved]
